FAERS Safety Report 12323492 (Version 2)
Quarter: 2016Q3

REPORT INFORMATION
  Report Type: Spontaneous
  Country: US (occurrence: US)
  Receive Date: 20160502
  Receipt Date: 20160706
  Transmission Date: 20161109
  Serious: No
  Sender: FDA-Public Use
  Company Number: US-PFIZER INC-2016210493

PATIENT
  Sex: Female

DRUGS (1)
  1. LYRICA [Suspect]
     Active Substance: PREGABALIN
     Dosage: UNK

REACTIONS (6)
  - Nausea [Unknown]
  - Hallucination [Unknown]
  - Feeling abnormal [Unknown]
  - Vomiting [Unknown]
  - Pain [Unknown]
  - Malaise [Unknown]
